FAERS Safety Report 4379552-6 (Version None)
Quarter: 2004Q2

REPORT INFORMATION
  Report Type: 
  Country: None (occurrence: None)
  Receive Date: 20040614
  Receipt Date: 20040603
  Transmission Date: 20050107
  Serious: Yes (Other)
  Sender: FDA-Public Use
  Company Number: 2004025382

PATIENT
  Sex: Female

DRUGS (3)
  1. ZYRTEC [Suspect]
     Indication: ILL-DEFINED DISORDER
  2. PREDNISONE TAB [Suspect]
     Indication: SWELLING FACE
  3. EPINEPHRINE [Suspect]
     Indication: ILL-DEFINED DISORDER

REACTIONS (1)
  - AUTOIMMUNE THYROIDITIS [None]
